FAERS Safety Report 7083455-6 (Version None)
Quarter: 2010Q4

REPORT INFORMATION
  Report Type: 
  Country: None (occurrence: None)
  Receive Date: 20101104
  Receipt Date: 20101026
  Transmission Date: 20110411
  Serious: Yes (Other)
  Sender: FDA-Public Use
  Company Number: B0680342A

PATIENT
  Sex: Male

DRUGS (6)
  1. PAXIL [Suspect]
     Indication: DEPRESSION
     Dosage: 20MG PER DAY
     Route: 048
     Dates: start: 20100716, end: 20101003
  2. PAXIL [Suspect]
     Dosage: 10MG PER DAY
     Route: 048
     Dates: start: 20101004
  3. DOGMATYL [Concomitant]
     Indication: GASTROINTESTINAL DISORDER
     Route: 048
     Dates: start: 20100518
  4. CHINESE MEDICINE [Concomitant]
     Indication: DEPRESSION
     Dosage: 10G PER DAY
     Dates: start: 20100518
  5. AMOBAN [Concomitant]
     Indication: INSOMNIA
     Dosage: 7.5MG PER DAY
     Route: 048
     Dates: start: 20100614, end: 20101003
  6. AMOBAN [Concomitant]
     Dosage: 3.45MG PER DAY
     Route: 048
     Dates: start: 20101004

REACTIONS (1)
  - AGGRESSION [None]
